FAERS Safety Report 17193854 (Version 5)
Quarter: 2020Q2

REPORT INFORMATION
  Report Type: Report from Study
  Country: US (occurrence: US)
  Receive Date: 20191223
  Receipt Date: 20200414
  Transmission Date: 20200713
  Serious: Yes (Other)
  Sender: FDA-Public Use
  Company Number: NVSC2019US076732

PATIENT
  Sex: Female

DRUGS (1)
  1. COSENTYX [Suspect]
     Active Substance: SECUKINUMAB
     Indication: PRODUCT USED FOR UNKNOWN INDICATION
     Dosage: UNK
     Route: 065
     Dates: start: 20191206

REACTIONS (7)
  - Rheumatoid arthritis [Recovering/Resolving]
  - Pain [Unknown]
  - Spondylitis [Unknown]
  - Malaise [Unknown]
  - Arthritis [Recovering/Resolving]
  - Polyarthritis [Recovering/Resolving]
  - Osteoarthritis [Not Recovered/Not Resolved]
